FAERS Safety Report 9680629 (Version 1)
Quarter: 2013Q4

REPORT INFORMATION
  Report Type: Spontaneous
  Country: FR (occurrence: FR)
  Receive Date: 20131111
  Receipt Date: 20131111
  Transmission Date: 20140711
  Serious: Yes (Death)
  Sender: FDA-Public Use
  Company Number: FR-JNJFOC-20131102290

PATIENT
  Age: 58 Year
  Sex: Male

DRUGS (3)
  1. REMICADE [Suspect]
     Indication: RHEUMATOID ARTHRITIS
     Route: 042
     Dates: start: 20051029
  2. REMICADE [Suspect]
     Indication: RHEUMATOID ARTHRITIS
     Route: 042
     Dates: start: 201207, end: 201207
  3. METHOTREXATE [Suspect]
     Indication: RHEUMATOID ARTHRITIS
     Dosage: 1.4286 MG/DAY; DURATION: 11 YEARS
     Route: 048
     Dates: start: 2001, end: 201209

REACTIONS (6)
  - Interstitial lung disease [Unknown]
  - Pulmonary fibrosis [Unknown]
  - Squamous cell carcinoma of lung [Fatal]
  - Metastases to bone [Fatal]
  - Metastases to skin [Fatal]
  - Respiratory distress [Fatal]
